FAERS Safety Report 7813270-4 (Version None)
Quarter: 2011Q4

REPORT INFORMATION
  Report Type: 
  Country: None (occurrence: None)
  Receive Date: 20111013
  Receipt Date: 20110930
  Transmission Date: 20120403
  Serious: Yes (Hospitalization, Other)
  Sender: FDA-Public Use
  Company Number: US-ELI_LILLY_AND_COMPANY-US201105005212

PATIENT
  Sex: Female

DRUGS (5)
  1. PLAVIX [Concomitant]
  2. FORTEO [Suspect]
     Dosage: 20 UG, QD
  3. VITAMIN TAB [Concomitant]
  4. NEXIUM [Concomitant]
  5. FORTEO [Suspect]
     Indication: OSTEOPOROSIS
     Dosage: 20 UG, QD
     Route: 065
     Dates: start: 20110502

REACTIONS (7)
  - MALAISE [None]
  - KIDNEY INFECTION [None]
  - ARTHROPATHY [None]
  - DEPRESSED LEVEL OF CONSCIOUSNESS [None]
  - MUSCULOSKELETAL DISORDER [None]
  - FALL [None]
  - HIP FRACTURE [None]
